FAERS Safety Report 7250238-3 (Version None)
Quarter: 2011Q1

REPORT INFORMATION
  Report Type: 
  Country: None (occurrence: None)
  Receive Date: 20110128
  Receipt Date: 20110116
  Transmission Date: 20110831
  Serious: Yes (Other)
  Sender: FDA-Public Use
  Company Number: US-BAYER-201030602NA

PATIENT
  Sex: Female

DRUGS (15)
  1. BETASERON [Suspect]
     Indication: MULTIPLE SCLEROSIS
     Dosage: 2 MIU, QOD
     Route: 058
     Dates: start: 20100804
  2. BENAZEPRIL HYDROCHLORIDE [Concomitant]
     Indication: HYPERTENSION
     Dosage: UNK
  3. SPIRONOLACTONE [Concomitant]
     Indication: HYPERTENSION
     Dosage: UNK
  4. BETASERON [Suspect]
     Dosage: 8 MIU, QOD
     Route: 058
  5. BETASERON [Suspect]
     Dosage: 8 MIU, QOD
     Route: 058
  6. CLONAZEPAM [Concomitant]
     Dates: start: 20100811
  7. PROZAC [Concomitant]
     Indication: DEPRESSION
     Dates: start: 19800101, end: 20100615
  8. CRESTOR [Concomitant]
     Indication: HYPERTENSION
     Dosage: UNK
  9. TYLENOL PM [Concomitant]
     Indication: MUSCULOSKELETAL PAIN
  10. ZOLOFT [Concomitant]
     Dates: end: 20100809
  11. PREVACID [Concomitant]
     Indication: GASTROOESOPHAGEAL REFLUX DISEASE
  12. EXTRA STRENGTH TYLENOL [Concomitant]
     Indication: MUSCULOSKELETAL PAIN
  13. ALISKIREN [Concomitant]
     Indication: HYPERTENSION
     Dosage: UNK
  14. PROZAC [Concomitant]
     Dosage: UNK UNK, QD
     Dates: start: 20100809
  15. PREVACID [Concomitant]
     Indication: DYSPEPSIA

REACTIONS (18)
  - AFFECT LABILITY [None]
  - HYPERTENSION [None]
  - BLOOD PRESSURE INCREASED [None]
  - DIZZINESS [None]
  - HYPERSOMNIA [None]
  - ANGER [None]
  - MUSCULOSKELETAL PAIN [None]
  - OESOPHAGEAL ULCER [None]
  - HIATUS HERNIA [None]
  - INJECTION SITE PAIN [None]
  - TEARFULNESS [None]
  - AGGRESSION [None]
  - CONFUSIONAL STATE [None]
  - INJECTION SITE MASS [None]
  - MEMORY IMPAIRMENT [None]
  - NAUSEA [None]
  - INFLUENZA [None]
  - FATIGUE [None]
